FAERS Safety Report 23087544 (Version 1)
Quarter: 2023Q4

REPORT INFORMATION
  Report Type: Spontaneous
  Country: US (occurrence: US)
  Receive Date: 20231020
  Receipt Date: 20231020
  Transmission Date: 20240109
  Serious: No
  Sender: FDA-Public Use
  Company Number: US-TEVA-2023-US-2933301

PATIENT
  Sex: Female

DRUGS (1)
  1. COPAXONE [Suspect]
     Active Substance: GLATIRAMER ACETATE
     Indication: Product used for unknown indication
     Dosage: FORM STRENGTH AND UNIT DOSE: 40 MG
     Route: 065
     Dates: start: 202309

REACTIONS (5)
  - Infection [Unknown]
  - Fatigue [Unknown]
  - Visual impairment [Unknown]
  - Illness [Unknown]
  - Product storage error [Unknown]
